FAERS Safety Report 19933943 (Version 2)
Quarter: 2021Q4

REPORT INFORMATION
  Report Type: Spontaneous
  Country: DE (occurrence: DE)
  Receive Date: 20211008
  Receipt Date: 20211206
  Transmission Date: 20220304
  Serious: Yes (Death, Hospitalization)
  Sender: FDA-Public Use
  Company Number: DE-DSJP-DSE-2021-132821

PATIENT
  Age: 88 Year
  Sex: Female
  Weight: 100 kg

DRUGS (6)
  1. EDOXABAN TOSYLATE [Suspect]
     Active Substance: EDOXABAN TOSYLATE
     Indication: Product used for unknown indication
     Dosage: 30 MG, QD
     Dates: start: 20210812, end: 20210821
  2. UNSPECIFIED INGREDIENT [Concomitant]
     Active Substance: UNSPECIFIED INGREDIENT
     Indication: Hypertension
     Dosage: UNK
  3. DRUGS FOR OBSTRUCTIVE AIRWAY DISEASES [Concomitant]
     Indication: Asthma
     Dosage: UNK
  4. ANALGESICS AND ANESTHETICS [Concomitant]
     Indication: Pain
     Dosage: UNK
  5. ASPIRIN [Concomitant]
     Active Substance: ASPIRIN
     Indication: Product used for unknown indication
     Dosage: UNK
  6. UNSPECIFIED INGREDIENT [Concomitant]
     Active Substance: UNSPECIFIED INGREDIENT
     Indication: Product used for unknown indication
     Dosage: UNK

REACTIONS (3)
  - Uterine cancer [Fatal]
  - Metastasis [Fatal]
  - Vaginal haemorrhage [Recovered/Resolved]

NARRATIVE: CASE EVENT DATE: 20210819
